FAERS Safety Report 23603808 (Version 1)
Quarter: 2024Q1

REPORT INFORMATION
  Report Type: Spontaneous
  Country: CN (occurrence: CN)
  Receive Date: 20240307
  Receipt Date: 20240307
  Transmission Date: 20240410
  Serious: Yes (Hospitalization)
  Sender: FDA-Public Use
  Company Number: CN-SHANGHAI JUNSHI BIOSCIENCES CO., LTD.-CN2024009392

PATIENT

DRUGS (2)
  1. TORIPALIMAB [Suspect]
     Active Substance: TORIPALIMAB
     Indication: Clear cell renal cell carcinoma
     Dosage: 240 MG
     Route: 041
     Dates: start: 20231213, end: 20231213
  2. PAZOPANIB [Concomitant]
     Active Substance: PAZOPANIB
     Indication: Clear cell renal cell carcinoma
     Dosage: UNK
     Route: 048
     Dates: start: 20231213, end: 20231213

REACTIONS (2)
  - Enteritis [Recovering/Resolving]
  - Off label use [Unknown]

NARRATIVE: CASE EVENT DATE: 20231213
